FAERS Safety Report 25611781 (Version 1)
Quarter: 2025Q3

REPORT INFORMATION
  Report Type: Spontaneous
  Country: US (occurrence: US)
  Receive Date: 20250728
  Receipt Date: 20250728
  Transmission Date: 20251021
  Serious: Yes (Other)
  Sender: ALEXION PHARMACEUTICALS
  Company Number: US-AstraZeneca-CH-00916781AP

PATIENT
  Sex: Female

DRUGS (1)
  1. BREZTRI [Suspect]
     Active Substance: BUDESONIDE\FORMOTEROL\GLYCOPYRROLATE
     Route: 065

REACTIONS (7)
  - Eye disorder [Unknown]
  - Cataract [Unknown]
  - Illness [Unknown]
  - Device delivery system issue [Unknown]
  - Product administration error [Unknown]
  - Product dose omission issue [Unknown]
  - Incorrect dose administered [Unknown]
